FAERS Safety Report 9609871 (Version 1)
Quarter: 2013Q4

REPORT INFORMATION
  Report Type: Report from Study
  Country: TW (occurrence: TW)
  Receive Date: 20131009
  Receipt Date: 20131009
  Transmission Date: 20140711
  Serious: No
  Sender: FDA-Public Use
  Company Number: PHHY2013TW071374

PATIENT
  Age: 51 Year
  Sex: Male

DRUGS (49)
  1. AMN107 [Suspect]
     Dosage: 800 MG, UNK
     Dates: start: 20110425
  2. AMBROXOL HCL [Concomitant]
     Indication: NASOPHARYNGITIS
     Dosage: UNK
     Dates: start: 20111122, end: 20111202
  3. AMBROXOL HCL [Concomitant]
     Indication: UPPER RESPIRATORY TRACT INFECTION
     Dosage: UNK
     Dates: start: 20120120, end: 20120130
  4. AMBROXOL HCL [Concomitant]
     Dosage: UNK
     Dates: start: 20121016, end: 20121025
  5. AMBROXOL HCL [Concomitant]
     Dosage: UNK
     Dates: start: 20130319, end: 20130408
  6. AMBROXOL HCL [Concomitant]
     Dosage: UNK
     Dates: start: 20130412
  7. AMLODIPINE BESYLATE [Concomitant]
     Indication: HYPERTENSION
     Dates: start: 20110215, end: 20110524
  8. AMLODIPINE BESYLATE [Concomitant]
     Dosage: UNK
     Dates: start: 20110802, end: 20111224
  9. ANTAZOLINE HYDROCHLORIDE [Concomitant]
     Indication: CONJUNCTIVITIS
     Dates: start: 20120120, end: 20120409
  10. BETAMETHASONE VALERATE [Concomitant]
     Indication: PRURITUS
     Dates: start: 20120921, end: 20121015
  11. BETAMETHASONE VALERATE [Concomitant]
     Indication: TINEA PEDIS
     Dosage: UNK
     Dates: start: 20121225, end: 20130117
  12. CHOLESTYRAMINE RESIN [Concomitant]
     Indication: DIARRHOEA
     Dosage: UNK
     Dates: start: 20110705, end: 20110707
  13. CHOLESTYRAMINE RESIN [Concomitant]
     Dosage: UNK
     Dates: start: 20110802, end: 20110809
  14. CHOLESTYRAMINE RESIN [Concomitant]
     Dosage: UNK
     Dates: start: 20110830, end: 20110927
  15. CIPROFLOXACIN HYDROCHLORIDE MONOHYDRATE [Concomitant]
     Indication: GASTROENTERITIS
     Dates: start: 20130215, end: 20130218
  16. CLONAZEPAM [Concomitant]
     Indication: MUSCLE SPASMS
     Dates: start: 20110215, end: 20110524
  17. CLONAZEPAM [Concomitant]
     Indication: INSOMNIA
     Dosage: UNK
     Dates: start: 20110802, end: 20120119
  18. CLONAZEPAM [Concomitant]
     Dosage: UNK
     Dates: start: 20120214, end: 20120820
  19. CLONAZEPAM [Concomitant]
     Dosage: UNK
     Dates: start: 20121016, end: 20121203
  20. DEXTROMETHORPHAN [Concomitant]
     Indication: NASOPHARYNGITIS
     Dates: start: 20111122, end: 20111202
  21. DEXTROMETHORPHAN [Concomitant]
     Dosage: UNK
     Dates: start: 20120120, end: 20120130
  22. DEXTROMETHORPHAN HBR [Concomitant]
     Indication: NASOPHARYNGITIS
     Dosage: UNK
     Dates: start: 20121016, end: 20121025
  23. DEXTROMETHORPHAN HBR [Concomitant]
     Indication: UPPER RESPIRATORY TRACT INFECTION
     Dosage: UNK
     Dates: start: 20130319, end: 20130408
  24. DEXTROMETHORPHAN HBR [Concomitant]
     Dosage: UNK
     Dates: start: 20130412
  25. DIMETHICONE [Concomitant]
     Indication: FLATULENCE
     Dosage: UNK
     Dates: start: 20110705, end: 20110801
  26. DIMETHICONE [Concomitant]
     Indication: ABDOMINAL DISTENSION
     Dosage: UNK
     Dates: start: 20111122, end: 20120119
  27. DIMETHICONE [Concomitant]
     Dosage: UNK
     Dates: start: 20120410, end: 20120720
  28. DIMETHICONE [Concomitant]
     Dosage: UNK
     Dates: start: 20120821, end: 20121112
  29. DIMETHICONE [Concomitant]
     Dosage: UNK
     Dates: start: 20130118
  30. FAMOTIDINE [Concomitant]
     Indication: GASTROOESOPHAGEAL REFLUX DISEASE
     Dates: start: 20130118
  31. FEXOFENADINE HCL [Concomitant]
     Indication: NASOPHARYNGITIS
     Dates: start: 20111122, end: 20111202
  32. FEXOFENADINE HCL [Concomitant]
     Indication: UPPER RESPIRATORY TRACT INFECTION
     Dosage: UNK
     Dates: start: 20120120, end: 20120130
  33. FEXOFENADINE HCL [Concomitant]
     Dosage: UNK
     Dates: start: 20121016, end: 20121025
  34. FEXOFENADINE HCL [Concomitant]
     Dosage: UNK
     Dates: start: 20130319, end: 20130408
  35. FEXOFENADINE HCL [Concomitant]
     Dosage: UNK
     Dates: start: 20130412
  36. FLUNITRAZEPAM [Concomitant]
     Indication: INSOMNIA
     Dates: start: 20120120, end: 20120213
  37. FLUNITRAZEPAM [Concomitant]
     Dosage: UNK
     Dates: start: 20130118
  38. FUSIDIC ACID [Concomitant]
     Indication: PRURITUS
     Dates: start: 20110524, end: 20110621
  39. HYDROCORTISONE ACETATE [Concomitant]
     Indication: PRURITUS
     Dosage: UNK
     Dates: start: 20120508, end: 20120821
  40. INDAPAMIDE [Concomitant]
     Indication: HYPERTENSION
     Dates: start: 20110215, end: 20110524
  41. LACTULOSE [Concomitant]
     Indication: CONSTIPATION
     Dates: start: 20120410, end: 20120414
  42. LEVOCETIRIZINE [Concomitant]
     Indication: PRURITUS
     Dates: start: 20110621, end: 20110801
  43. LOPERAMIDE HCL [Concomitant]
     Indication: DIARRHOEA
     Dosage: UNK
     Dates: start: 20121113, end: 20121123
  44. MAGNESIUM OXIDE [Concomitant]
     Indication: CONSTIPATION
     Dosage: UNK
     Dates: start: 20120410, end: 20120723
  45. PRAVASTATIN SODIUM [Concomitant]
     Indication: HYPERCHOLESTEROLAEMIA
     Dates: start: 20120724, end: 20120918
  46. PRAVASTATIN SODIUM [Concomitant]
     Dates: start: 20121016, end: 20121203
  47. PRAVASTATIN SODIUM [Concomitant]
     Dates: start: 20121225
  48. SERTACONAZOLE NITRATE [Concomitant]
     Indication: PRURITUS
     Dosage: UNK
     Dates: start: 20121225, end: 20130117
  49. SULFAMETHOXAZOLE [Concomitant]
     Indication: CONJUNCTIVITIS
     Dates: start: 20120120, end: 20120213

REACTIONS (1)
  - Gastroenteritis [Unknown]
